FAERS Safety Report 7543411-8 (Version None)
Quarter: 2011Q2

REPORT INFORMATION
  Report Type: 
  Country: None (occurrence: None)
  Receive Date: 20110613
  Receipt Date: 20110531
  Transmission Date: 20111010
  Serious: No
  Sender: FDA-Public Use
  Company Number: US-MUTUAL PHARMACEUTICAL COMPANY, INC.-MTFN20110005

PATIENT
  Sex: Male
  Weight: 79.45 kg

DRUGS (2)
  1. NIASPAN [Suspect]
     Indication: BLOOD CHOLESTEROL ABNORMAL
     Route: 065
  2. METFORMIN HCL [Suspect]
     Indication: DIABETES MELLITUS
     Route: 065

REACTIONS (4)
  - SYNCOPE [None]
  - PHARYNGEAL OEDEMA [None]
  - PARAESTHESIA [None]
  - DYSPNOEA [None]
